FAERS Safety Report 6179447-1 (Version None)
Quarter: 2009Q2

REPORT INFORMATION
  Report Type: 
  Country: None (occurrence: None)
  Receive Date: 20090501
  Receipt Date: 20090501
  Transmission Date: 20091009
  Serious: No
  Sender: FDA-Public Use
  Company Number: None

PATIENT
  Age: 58 Year
  Sex: Male
  Weight: 102.0593 kg

DRUGS (1)
  1. ZICAM COLD REMEDY ZYCAM [Suspect]
     Indication: NASOPHARYNGITIS
     Dosage: 4 SPRAYS EVERY 3 HOURS PO
     Route: 048
     Dates: start: 20090426, end: 20090426

REACTIONS (3)
  - AGEUSIA [None]
  - ANOSMIA [None]
  - GLOSSODYNIA [None]
